FAERS Safety Report 9636757 (Version 2)
Quarter: 2013Q4

REPORT INFORMATION
  Report Type: Spontaneous
  Country: CA (occurrence: CA)
  Receive Date: 20131022
  Receipt Date: 20131022
  Transmission Date: 20140711
  Serious: Yes (Other)
  Sender: FDA-Public Use
  Company Number: CA-PFIZER INC-2013269981

PATIENT
  Sex: Female

DRUGS (1)
  1. ADVIL EXTRA STRENGTH LIQUI-GELS [Suspect]
     Dosage: UNK

REACTIONS (3)
  - Choking [Recovered/Resolved]
  - Product size issue [Recovered/Resolved]
  - Dysphagia [Unknown]
